FAERS Safety Report 5642727-X (Version None)
Quarter: 2008Q1

REPORT INFORMATION
  Report Type: 
  Country: None (occurrence: None)
  Receive Date: 20080226
  Receipt Date: 20080213
  Transmission Date: 20080703
  Serious: Yes (Death)
  Sender: FDA-Public Use
  Company Number: 2008-GB-000289

PATIENT
  Age: 1 Year
  Sex: Female
  Weight: 5.3 kg

DRUGS (2)
  1. INCRELEX [Suspect]
     Indication: INSULIN RESISTANCE SYNDROME
     Dosage: 0.2 MG, BID, SUBCUTANEOUS
     Route: 058
     Dates: start: 20071203, end: 20080207
  2. SODIUM FEREDETATE (SODIUM FEREDETATE) [Concomitant]

REACTIONS (2)
  - DISEASE COMPLICATION [None]
  - INSULIN RESISTANCE SYNDROME [None]
